FAERS Safety Report 4697045-3 (Version None)
Quarter: 2005Q2

REPORT INFORMATION
  Report Type: 
  Country: None (occurrence: None)
  Receive Date: 20050620
  Receipt Date: 20050412
  Transmission Date: 20051028
  Serious: No
  Sender: FDA-Public Use
  Company Number: US-YAMANOUCHI-YPA20050195

PATIENT
  Age: 53 Year
  Sex: Female

DRUGS (1)
  1. VESICARE [Suspect]
     Indication: HYPERTONIC BLADDER
     Dosage: 5 MG
     Dates: start: 20050313, end: 20050401

REACTIONS (1)
  - OEDEMA [None]
